FAERS Safety Report 8978960 (Version 2)
Quarter: 2013Q1

REPORT INFORMATION
  Report Type: Spontaneous
  Country: FR (occurrence: FR)
  Receive Date: 20121221
  Receipt Date: 20130215
  Transmission Date: 20140127
  Serious: Yes (Death, Other)
  Sender: FDA-Public Use
  Company Number: FR-B.I. PHARMACEUTICALS,INC./RIDGEFIELD-2012-FF-01978FF

PATIENT
  Age: 91 Year
  Sex: Female
  Weight: 65 kg

DRUGS (6)
  1. PRADAXA [Suspect]
     Indication: ATRIAL FIBRILLATION
     Dosage: 220 MG
     Route: 048
     Dates: start: 20121113
  2. TEMERIT [Concomitant]
     Dosage: 5 MG
     Route: 048
  3. LASILIX [Concomitant]
     Dosage: 40 MG
     Route: 048
  4. APROVEL [Concomitant]
     Dosage: 75 MG
     Route: 048
  5. SEROPLEX [Concomitant]
     Dosage: 10 MG
     Route: 048
  6. ROCEPHINE [Concomitant]
     Dosage: 1 G
     Route: 048

REACTIONS (1)
  - Acute coronary syndrome [Fatal]
